FAERS Safety Report 12887927 (Version 3)
Quarter: 2016Q4

REPORT INFORMATION
  Report Type: Report from Study
  Country: US (occurrence: US)
  Receive Date: 20161027
  Receipt Date: 20161201
  Transmission Date: 20170207
  Serious: Yes (Life-Threatening, Hospitalization, Other)
  Sender: FDA-Public Use
  Company Number: US-GILEAD-2016-0240032

PATIENT
  Age: 71 Year
  Sex: Female
  Weight: 87.98 kg

DRUGS (5)
  1. AMBRISENTAN [Suspect]
     Active Substance: AMBRISENTAN
     Indication: PULMONARY ARTERIAL HYPERTENSION
     Dosage: 10 MG, QD
     Route: 048
     Dates: start: 20160928, end: 20161111
  2. OXYGEN. [Concomitant]
     Active Substance: OXYGEN
  3. SILDENAFIL. [Concomitant]
     Active Substance: SILDENAFIL
  4. AMBRISENTAN [Suspect]
     Active Substance: AMBRISENTAN
     Indication: CARDIAC FAILURE
  5. XARELTO [Concomitant]
     Active Substance: RIVAROXABAN

REACTIONS (4)
  - Peripheral swelling [Recovered/Resolved]
  - Gout [Recovered/Resolved]
  - Oedema [Recovered/Resolved]
  - Apparent death [Recovered/Resolved]

NARRATIVE: CASE EVENT DATE: 20161006
